FAERS Safety Report 5491950-6 (Version None)
Quarter: 2007Q4

REPORT INFORMATION
  Report Type: 
  Country: None (occurrence: None)
  Receive Date: 20071018
  Receipt Date: 20071018
  Transmission Date: 20080405
  Serious: No
  Sender: FDA-Public Use
  Company Number: None

PATIENT
  Age: 63 Year
  Sex: Male

DRUGS (1)
  1. LISINOPRIL [Suspect]
     Indication: HYPERTENSION
     Dosage: 10MG  EVERY DAY  PO
     Route: 048
     Dates: start: 20070822, end: 20070904

REACTIONS (2)
  - PRURITUS [None]
  - URTICARIA [None]
